FAERS Safety Report 4639478-7 (Version None)
Quarter: 2005Q2

REPORT INFORMATION
  Report Type: 
  Country: None (occurrence: None)
  Receive Date: 20050419
  Receipt Date: 20050406
  Transmission Date: 20051028
  Serious: Yes (Hospitalization)
  Sender: FDA-Public Use
  Company Number: 04-000085

PATIENT
  Age: 64 Year
  Sex: Female
  Weight: 71.7 kg

DRUGS (3)
  1. FEMHRT [Suspect]
     Indication: HORMONE REPLACEMENT THERAPY
     Dosage: 5/1000UG, QD, ORAL
     Route: 048
     Dates: start: 20020301, end: 20030301
  2. LOTENSIN [Concomitant]
  3. EFFEXOR [Concomitant]

REACTIONS (10)
  - BLOOD PRESSURE DECREASED [None]
  - BRADYCARDIA [None]
  - CARDIAC DISORDER [None]
  - CATHETERISATION CARDIAC ABNORMAL [None]
  - CORONARY ARTERY DISEASE [None]
  - CORONARY ARTERY OCCLUSION [None]
  - HYPERTENSION [None]
  - PHAEOCHROMOCYTOMA [None]
  - TACHYCARDIA [None]
  - WEIGHT INCREASED [None]
